FAERS Safety Report 11113550 (Version 4)
Quarter: 2018Q2

REPORT INFORMATION
  Report Type: Spontaneous
  Country: US (occurrence: US)
  Receive Date: 20150514
  Receipt Date: 20180625
  Transmission Date: 20180711
  Serious: Yes (Death, Hospitalization)
  Sender: FDA-Public Use
  Company Number: US-JNJFOC-20150504822

PATIENT
  Age: 78 Year
  Sex: Male

DRUGS (17)
  1. XARELTO [Suspect]
     Active Substance: RIVAROXABAN
     Indication: CARDIOVASCULAR DISORDER
     Route: 048
     Dates: start: 20120309, end: 20130618
  2. SPIRONOLACTONE. [Concomitant]
     Active Substance: SPIRONOLACTONE
     Indication: CARDIAC DISORDER
     Route: 048
     Dates: start: 20121211, end: 20130618
  3. XARELTO [Suspect]
     Active Substance: RIVAROXABAN
     Indication: ARRHYTHMIA
     Route: 048
     Dates: start: 20120309, end: 20130618
  4. XARELTO [Suspect]
     Active Substance: RIVAROXABAN
     Indication: ARTERIOSCLEROSIS
     Route: 048
     Dates: start: 20120309, end: 20130618
  5. TERAZOSIN [Concomitant]
     Active Substance: TERAZOSIN\TERAZOSIN HYDROCHLORIDE
     Indication: CARDIAC DISORDER
     Route: 048
     Dates: start: 20120311, end: 20130618
  6. XARELTO [Suspect]
     Active Substance: RIVAROXABAN
     Indication: CEREBROVASCULAR ACCIDENT
     Route: 048
     Dates: start: 20120309, end: 20130618
  7. QUINAPRIL. [Concomitant]
     Active Substance: QUINAPRIL
     Route: 065
     Dates: start: 20120102, end: 20120402
  8. FERROUS SULFATE. [Concomitant]
     Active Substance: FERROUS SULFATE
  9. VITAMIN D [Concomitant]
     Active Substance: CHOLECALCIFEROL
  10. FLOMAX [Concomitant]
     Active Substance: TAMSULOSIN HYDROCHLORIDE
  11. COUMADIN [Suspect]
     Active Substance: WARFARIN SODIUM
     Indication: ANTICOAGULANT THERAPY
     Route: 065
     Dates: start: 20120105, end: 20120128
  12. LASIX [Concomitant]
     Active Substance: FUROSEMIDE
  13. ASPIRIN. [Suspect]
     Active Substance: ASPIRIN
     Indication: THROMBOSIS PROPHYLAXIS
     Route: 048
  14. ASPIRIN. [Suspect]
     Active Substance: ASPIRIN
     Indication: ARRHYTHMIA
     Route: 048
  15. DULCOLAX NOS [Concomitant]
     Active Substance: BISACODYL OR DOCUSATE SODIUM
  16. LIPITOR [Concomitant]
     Active Substance: ATORVASTATIN CALCIUM
  17. POTASSIUM [Concomitant]
     Active Substance: POTASSIUM

REACTIONS (3)
  - Haematoma [Fatal]
  - Haemorrhage intracranial [Fatal]
  - Drug ineffective [Unknown]

NARRATIVE: CASE EVENT DATE: 201306
